FAERS Safety Report 14254824 (Version 2)
Quarter: 2018Q1

REPORT INFORMATION
  Report Type: Spontaneous
  Country: US (occurrence: US)
  Receive Date: 20171206
  Receipt Date: 20180115
  Transmission Date: 20180508
  Serious: Yes (Death, Disabling, Other)
  Sender: FDA-Public Use
  Company Number: US-ASTELLAS-2017US051344

PATIENT
  Age: 67 Year
  Sex: Female

DRUGS (5)
  1. PROGRAF [Suspect]
     Active Substance: TACROLIMUS\TACROLIMUS ANHYDROUS
     Indication: RENAL TRANSPLANT
     Dosage: 3 MG, ONCE DAILY (3 MG IN MORNING)
     Route: 048
  2. MYFORTIC [Suspect]
     Active Substance: MYCOPHENOLATE SODIUM
     Indication: RENAL TRANSPLANT
     Route: 048
  3. LASIX [Suspect]
     Active Substance: FUROSEMIDE
     Indication: PRODUCT USED FOR UNKNOWN INDICATION
     Dosage: UNK, UNKNOWN FREQ.
     Route: 065
  4. PROGRAF [Suspect]
     Active Substance: TACROLIMUS\TACROLIMUS ANHYDROUS
     Dosage: 4 MG, ONCE DAILY (IN PM)
     Route: 048
  5. PREDNISONE. [Suspect]
     Active Substance: PREDNISONE
     Indication: RENAL TRANSPLANT
     Route: 048

REACTIONS (8)
  - Product physical issue [Unknown]
  - Drug level below therapeutic [Unknown]
  - Pain [Unknown]
  - Manufacturing issue [Unknown]
  - Drug dispensing error [Unknown]
  - Death [Fatal]
  - Emotional distress [Unknown]
  - Injury [Unknown]

NARRATIVE: CASE EVENT DATE: 20161205
